FAERS Safety Report 13573594 (Version 1)
Quarter: 2017Q2

REPORT INFORMATION
  Report Type: Report from Study
  Country: NO (occurrence: NO)
  Receive Date: 20170523
  Receipt Date: 20170523
  Transmission Date: 20170830
  Serious: Yes (Other)
  Sender: FDA-Public Use
  Company Number: NO-BAYER-2017-089783

PATIENT
  Age: 39 Year
  Sex: Female

DRUGS (1)
  1. MIRENA [Suspect]
     Active Substance: LEVONORGESTREL
     Dosage: 20 MCG/24HR, ONCE
     Route: 015
     Dates: start: 20170328, end: 20170328

REACTIONS (3)
  - Infection [None]
  - Pain [None]
  - Complication of device insertion [None]

NARRATIVE: CASE EVENT DATE: 20170328
